FAERS Safety Report 4330803-3 (Version None)
Quarter: 2004Q1

REPORT INFORMATION
  Report Type: 
  Country: None (occurrence: None)
  Receive Date: 20040331
  Receipt Date: 20040315
  Transmission Date: 20041129
  Serious: Yes (Hospitalization)
  Sender: FDA-Public Use
  Company Number: 205271

PATIENT
  Age: 14 Year
  Sex: Male
  Weight: 32.9 kg

DRUGS (2)
  1. NUTROPIN [Suspect]
     Indication: BODY HEIGHT BELOW NORMAL
     Dosage: 1.41 MG, QD, SUBCUTANEOUS
     Route: 058
     Dates: start: 19951110, end: 20030912
  2. SYNTHROID [Concomitant]

REACTIONS (2)
  - NEURILEMMOMA [None]
  - NEUROFIBROMA [None]
